FAERS Safety Report 26077320 (Version 1)
Quarter: 2025Q4

REPORT INFORMATION
  Report Type: Spontaneous
  Country: CN (occurrence: CN)
  Receive Date: 20251121
  Receipt Date: 20251121
  Transmission Date: 20260117
  Serious: Yes (Other)
  Sender: ELI LILLY AND COMPANY
  Company Number: CN-ELI_LILLY_AND_COMPANY-CN202511012246

PATIENT
  Age: 68 Year
  Sex: Male

DRUGS (12)
  1. PEMETREXED [Suspect]
     Active Substance: PEMETREXED
     Indication: Lung adenocarcinoma stage IV
     Dosage: 500 MG/M2, UNKNOWN
     Route: 065
     Dates: start: 20220507
  2. PEMETREXED [Suspect]
     Active Substance: PEMETREXED
     Indication: Metastases to meninges
     Dosage: 20 MG, CYCLICAL
     Route: 037
     Dates: start: 202205, end: 202209
  3. PEMETREXED [Suspect]
     Active Substance: PEMETREXED
     Dosage: 40 UNK
     Route: 037
     Dates: start: 202210, end: 202306
  4. CARBOPLATIN [Suspect]
     Active Substance: CARBOPLATIN
     Indication: Lung adenocarcinoma stage IV
     Dosage: (AUC 5)
     Dates: start: 20220507
  5. CARBOPLATIN [Suspect]
     Active Substance: CARBOPLATIN
     Indication: Metastases to meninges
     Dosage: AUC5 ON DAY 1
     Route: 065
     Dates: start: 202205, end: 202209
  6. TISLELIZUMAB [Suspect]
     Active Substance: TISLELIZUMAB
     Indication: Lung adenocarcinoma stage IV
     Dosage: 200 MG, CYCLICAL
     Route: 065
     Dates: start: 202205, end: 202209
  7. TISLELIZUMAB [Suspect]
     Active Substance: TISLELIZUMAB
     Indication: Metastases to meninges
     Dosage: UNK UNK, UNKNOWN
     Route: 042
     Dates: start: 202210, end: 202306
  8. TISLELIZUMAB [Suspect]
     Active Substance: TISLELIZUMAB
     Dosage: UNK, UNKNOWN
     Route: 042
     Dates: start: 202307, end: 202407
  9. DEXAMETHASONE [Suspect]
     Active Substance: DEXAMETHASONE
     Indication: Metastases to meninges
     Dosage: UNK UNK, UNKNOWN
     Route: 065
     Dates: start: 202205, end: 202209
  10. DEXAMETHASONE [Suspect]
     Active Substance: DEXAMETHASONE
     Indication: Lung adenocarcinoma stage IV
     Dosage: 5 MG, CYCLICAL
     Route: 037
     Dates: start: 202307, end: 202407
  11. BEVACIZUMAB [Concomitant]
     Active Substance: BEVACIZUMAB
     Indication: Lung adenocarcinoma stage IV
     Dosage: 7.5 MG/KG, UNKNOWN
     Route: 065
     Dates: start: 20220507
  12. BEVACIZUMAB [Concomitant]
     Active Substance: BEVACIZUMAB
     Indication: Metastases to meninges
     Dosage: UNK, CYCLICAL
     Route: 042
     Dates: start: 202307, end: 202407

REACTIONS (5)
  - Intracranial pressure increased [Unknown]
  - Neurological symptom [Unknown]
  - Malignant neoplasm progression [Unknown]
  - Thrombocytopenia [Unknown]
  - Incorrect route of product administration [Unknown]
